FAERS Safety Report 14382087 (Version 3)
Quarter: 2018Q3

REPORT INFORMATION
  Report Type: Report from Study
  Country: AR (occurrence: AR)
  Receive Date: 20180112
  Receipt Date: 20180918
  Transmission Date: 20181010
  Serious: Yes (Hospitalization)
  Sender: FDA-Public Use
  Company Number: PHHY2018AR002457

PATIENT
  Age: 74 Year
  Sex: Male

DRUGS (4)
  1. ENTRESTO [Suspect]
     Active Substance: SACUBITRIL\VALSARTAN
     Dosage: UNK
     Route: 065
  2. ATLANSIL [Suspect]
     Active Substance: AMIODARONE
     Indication: PRODUCT USED FOR UNKNOWN INDICATION
     Dosage: UNK
     Route: 065
  3. ENTRESTO [Suspect]
     Active Substance: SACUBITRIL\VALSARTAN
     Indication: CARDIAC FAILURE CHRONIC
     Dosage: UNK
     Route: 065
     Dates: start: 2016, end: 201706
  4. ENTRESTO [Suspect]
     Active Substance: SACUBITRIL\VALSARTAN
     Dosage: UNK

REACTIONS (26)
  - Blood pressure decreased [Recovering/Resolving]
  - Nausea [Unknown]
  - Vomiting [Unknown]
  - Hyperhidrosis [Unknown]
  - Nasopharyngitis [Unknown]
  - Weight decreased [Recovering/Resolving]
  - Malaise [Unknown]
  - Balance disorder [Recovering/Resolving]
  - Abdominal discomfort [Unknown]
  - Cognitive disorder [Unknown]
  - Speech disorder [Not Recovered/Not Resolved]
  - Cardiac failure [Unknown]
  - Mobility decreased [Recovering/Resolving]
  - Hypoaesthesia [Unknown]
  - Arterial occlusive disease [Unknown]
  - Fluid retention [Unknown]
  - Breath sounds abnormal [Unknown]
  - Decreased appetite [Recovering/Resolving]
  - Limb discomfort [Recovering/Resolving]
  - Complication associated with device [Unknown]
  - Memory impairment [Recovering/Resolving]
  - Peripheral swelling [Unknown]
  - Renal impairment [Recovering/Resolving]
  - Insomnia [Unknown]
  - Pallor [Unknown]
  - Vocal cord disorder [Unknown]

NARRATIVE: CASE EVENT DATE: 201706
